FAERS Safety Report 9520977 (Version 1)
Quarter: 2013Q3

REPORT INFORMATION
  Report Type: Spontaneous
  Country: US (occurrence: US)
  Receive Date: 20130913
  Receipt Date: 20130913
  Transmission Date: 20140515
  Serious: No
  Sender: FDA-Public Use
  Company Number: US-PFIZER INC-2013260137

PATIENT
  Sex: Female

DRUGS (2)
  1. DIFLUCAN [Suspect]
     Dosage: UNK
  2. MONISTAT [Suspect]
     Dosage: UNK

REACTIONS (4)
  - Vaginal disorder [Unknown]
  - Skin bacterial infection [Unknown]
  - Fungal skin infection [Unknown]
  - Drug hypersensitivity [Unknown]
